FAERS Safety Report 9400956 (Version 1)
Quarter: 2013Q3

REPORT INFORMATION
  Report Type: Spontaneous
  Country: IT (occurrence: IT)
  Receive Date: 20130715
  Receipt Date: 20130715
  Transmission Date: 20140515
  Serious: Yes (Other)
  Sender: FDA-Public Use
  Company Number: IT-WATSON-2013-12056

PATIENT
  Age: 43 Year
  Sex: Male

DRUGS (6)
  1. ACITRETIN (UNKNOWN) [Suspect]
     Indication: PSORIASIS
     Dosage: UNK
     Route: 065
  2. CYCLOSPORINE (UNKNOWN) [Suspect]
     Indication: PSORIASIS
     Dosage: UNK
     Route: 065
  3. ETANERCEPT [Suspect]
     Indication: PSORIASIS
     Dosage: UNK
     Route: 065
  4. ADALIMUMAB [Suspect]
     Indication: PSORIASIS
     Dosage: UNK
     Route: 065
  5. INFLIXIMAB [Suspect]
     Indication: PSORIASIS
     Dosage: 5 MG/KG, EVERY EIGHT WEEKS
     Route: 065
     Dates: start: 2007
  6. METHOTREXATE [Concomitant]
     Indication: PSORIASIS
     Dosage: 7.5 MG, 2/WEEK
     Route: 048
     Dates: start: 2007

REACTIONS (1)
  - Nodular melanoma [Unknown]
